FAERS Safety Report 25867421 (Version 1)
Quarter: 2025Q4

REPORT INFORMATION
  Report Type: Spontaneous
  Country: RU (occurrence: RU)
  Receive Date: 20251001
  Receipt Date: 20251001
  Transmission Date: 20260117
  Serious: Yes (Other)
  Sender: EMD SERONO INC
  Company Number: RU-Merck Healthcare KGaA-2025048926

PATIENT
  Sex: Female

DRUGS (1)
  1. EUTHYROX [Suspect]
     Active Substance: LEVOTHYROXINE SODIUM
     Indication: Product used for unknown indication
     Dosage: PRODUCTION DATE: JUL-2024?EXPIRATION DATE: JUN-2027?GTIN: 04054839993176?CODE: ATV6G3DSSR19V

REACTIONS (1)
  - Mast cell activation syndrome [Unknown]
